FAERS Safety Report 9125052 (Version 1)
Quarter: 2013Q1

REPORT INFORMATION
  Report Type: Spontaneous
  Country: US (occurrence: US)
  Receive Date: 20130227
  Receipt Date: 20130227
  Transmission Date: 20140127
  Serious: No
  Sender: FDA-Public Use
  Company Number: US-009507513-1302USA012327

PATIENT
  Age: 5 Year
  Sex: Male

DRUGS (2)
  1. SYLATRON [Suspect]
     Indication: MALIGNANT MELANOMA
     Dosage: 0.05 DF, QW
     Dates: start: 20130211
  2. SINGULAIR [Concomitant]
     Route: 048

REACTIONS (6)
  - Poor quality sleep [Recovering/Resolving]
  - Monocyte count decreased [Recovering/Resolving]
  - Restlessness [Recovering/Resolving]
  - Weight decreased [Recovering/Resolving]
  - Decreased appetite [Recovering/Resolving]
  - Overdose [Unknown]
